FAERS Safety Report 10685337 (Version 2)
Quarter: 2015Q2

REPORT INFORMATION
  Report Type: Spontaneous
  Country: US (occurrence: US)
  Receive Date: 20141231
  Receipt Date: 20150527
  Transmission Date: 20150821
  Serious: No
  Sender: FDA-Public Use
  Company Number: US-GLAXOSMITHKLINE-US2014GSK044539

PATIENT
  Sex: Female

DRUGS (1)
  1. IMITREX SPRAY [Suspect]
     Active Substance: SUMATRIPTAN
     Indication: PRODUCT USED FOR UNKNOWN INDICATION
     Dosage: 20 MG, U

REACTIONS (4)
  - Feeling abnormal [Recovered/Resolved]
  - Migraine [Recovered/Resolved]
  - Insomnia [Recovered/Resolved]
  - Drug dose omission [Unknown]
